FAERS Safety Report 24747907 (Version 1)
Quarter: 2024Q4

REPORT INFORMATION
  Report Type: Spontaneous
  Country: US (occurrence: None)
  Receive Date: 20241217
  Receipt Date: 20241217
  Transmission Date: 20250114
  Serious: Yes (Other)
  Sender: Public
  Company Number: None

PATIENT
  Age: 46 Year
  Sex: Male
  Weight: 80.1 kg

DRUGS (6)
  1. EMGALITY [Suspect]
     Active Substance: GALCANEZUMAB-GNLM
     Indication: Migraine
     Dosage: OTHER FREQUENCY : MONTHLY INJECTION;?
     Route: 058
     Dates: start: 20241011, end: 20241111
  2. CYMBALTA [Concomitant]
     Active Substance: DULOXETINE HYDROCHLORIDE
  3. VITAMINS [Concomitant]
     Active Substance: VITAMINS
  4. ZYRTEC [Concomitant]
     Active Substance: CETIRIZINE HYDROCHLORIDE
  5. FLONASE [Concomitant]
     Active Substance: FLUTICASONE PROPIONATE
  6. ZADITOR [Concomitant]
     Active Substance: KETOTIFEN FUMARATE

REACTIONS (9)
  - Rash [None]
  - Dry skin [None]
  - Pruritus [None]
  - Urticaria [None]
  - Erythema [None]
  - Constipation [None]
  - Temperature intolerance [None]
  - Conjunctival haemorrhage [None]
  - Post procedural complication [None]

NARRATIVE: CASE EVENT DATE: 20241209
